FAERS Safety Report 14551335 (Version 1)
Quarter: 2018Q1

REPORT INFORMATION
  Report Type: Spontaneous
  Country: IL (occurrence: IL)
  Receive Date: 20180220
  Receipt Date: 20180220
  Transmission Date: 20180509
  Serious: Yes (Hospitalization)
  Sender: FDA-Public Use
  Company Number: IL-ROCHE-2069827

PATIENT
  Sex: Male

DRUGS (3)
  1. COTELLIC [Suspect]
     Active Substance: COBIMETINIB
     Route: 048
  2. COTELLIC [Suspect]
     Active Substance: COBIMETINIB
     Indication: COLON CANCER METASTATIC
     Route: 048
     Dates: start: 20171121
  3. TECENTRIQ [Suspect]
     Active Substance: ATEZOLIZUMAB
     Indication: COLON CANCER METASTATIC
     Route: 042
     Dates: start: 20171121

REACTIONS (3)
  - Intentional product use issue [Unknown]
  - Off label use [Unknown]
  - Petit mal epilepsy [Recovered/Resolved]
